FAERS Safety Report 6518889-9 (Version None)
Quarter: 2009Q4

REPORT INFORMATION
  Report Type: 
  Country: None (occurrence: None)
  Receive Date: 20091228
  Receipt Date: 20091217
  Transmission Date: 20100525
  Serious: Yes (Hospitalization)
  Sender: FDA-Public Use
  Company Number: AR-ELI_LILLY_AND_COMPANY-AR200911005550

PATIENT
  Age: 61 Year
  Sex: Female
  Weight: 120 kg

DRUGS (6)
  1. BYETTA [Suspect]
     Indication: TYPE 2 DIABETES MELLITUS
     Dosage: 5 UG, 2/D
     Route: 058
     Dates: start: 20090625
  2. BYETTA [Suspect]
     Dosage: 10 UG, 2/D
     Route: 058
     Dates: start: 20090901, end: 20090901
  3. GLIMEPIRIDE [Concomitant]
     Dosage: UNK, UNKNOWN
     Route: 048
  4. INSULIN ASPART [Concomitant]
     Indication: BLOOD GLUCOSE INCREASED
     Dosage: UNK, UNKNOWN
  5. METFORMIN HCL [Concomitant]
     Dosage: UNK, UNKNOWN
     Route: 065
  6. ENALAPRIL [Concomitant]
     Indication: HYPERTENSION
     Dosage: UNK, UNKNOWN
     Route: 065

REACTIONS (9)
  - BLOOD GLUCOSE INCREASED [None]
  - DECREASED APPETITE [None]
  - DIZZINESS [None]
  - FATIGUE [None]
  - FEEDING DISORDER [None]
  - OFF LABEL USE [None]
  - SOMNOLENCE [None]
  - STRESS [None]
  - VOMITING [None]
